FAERS Safety Report 6212322-2 (Version None)
Quarter: 2009Q2

REPORT INFORMATION
  Report Type: 
  Country: None (occurrence: None)
  Receive Date: 20090529
  Receipt Date: 20090514
  Transmission Date: 20091009
  Serious: Yes (Other)
  Sender: FDA-Public Use
  Company Number: 2009S1008500

PATIENT
  Age: 54 Year
  Sex: Male

DRUGS (6)
  1. SOTALOL HCL [Suspect]
     Indication: HEART RATE IRREGULAR
     Dosage: 40 MG;TWICE A DAY; ORAL
     Route: 048
     Dates: start: 20051229
  2. SOTALOL HCL [Suspect]
     Indication: TACHYCARDIA
     Dosage: 40 MG;TWICE A DAY; ORAL
     Route: 048
     Dates: start: 20051229
  3. DIAZEPAM [Concomitant]
  4. FLUOXETINE HCL [Concomitant]
  5. IBUPROFEN [Concomitant]
  6. FISH OIL [Concomitant]

REACTIONS (1)
  - DRUG INEFFECTIVE [None]
